FAERS Safety Report 7590483-0 (Version None)
Quarter: 2011Q3

REPORT INFORMATION
  Report Type: 
  Country: None (occurrence: None)
  Receive Date: 20110705
  Receipt Date: 20110623
  Transmission Date: 20111222
  Serious: Yes (Hospitalization, Disabling, Other)
  Sender: FDA-Public Use
  Company Number: DE-BAYER-201022901GPV

PATIENT
  Age: 47 Year
  Sex: Female
  Weight: 65 kg

DRUGS (5)
  1. TARGIN [Concomitant]
     Dosage: 1-1-1 - AS USED DOSE: 5/10 MG
     Route: 048
     Dates: start: 20080213, end: 20080214
  2. FRAXIPARIN [Concomitant]
     Route: 058
  3. IBUPROFEN [Concomitant]
     Dosage: 1-1-1
     Dates: start: 20080213, end: 20080214
  4. AVELOX [Suspect]
     Indication: WOUND INFECTION
     Dosage: 1-0-0
     Route: 048
     Dates: start: 20080211, end: 20080214
  5. CIPRO [Suspect]
     Indication: WOUND INFECTION
     Route: 048
     Dates: start: 20080206, end: 20080201

REACTIONS (2)
  - WOUND INFECTION [None]
  - FINGER AMPUTATION [None]
